FAERS Safety Report 4382023-4 (Version None)
Quarter: 2004Q2

REPORT INFORMATION
  Report Type: 
  Country: None (occurrence: None)
  Receive Date: 20040615
  Receipt Date: 20040607
  Transmission Date: 20050107
  Serious: Yes (Death)
  Sender: FDA-Public Use
  Company Number: HQWYE732527FEB03

PATIENT
  Age: 62 Year
  Sex: Female

DRUGS (3)
  1. DIMETAPP [Suspect]
     Dosage: ORAL
     Route: 048
  2. HALL'S MENTHO-LYPTYS (EUCALYPTUS OIL/MENTHOL [Suspect]
     Dosage: ORAL
     Route: 048
  3. ROBITUSSIN CF (GUAIFENESIN/DEXGTROMETHORPHAN/PHENYLPROPANOLAMINE, SYRU [Suspect]
     Dosage: ORAL
     Route: 048
     Dates: start: 19980101

REACTIONS (1)
  - CEREBROVASCULAR ACCIDENT [None]
